FAERS Safety Report 24598263 (Version 3)
Quarter: 2025Q1

REPORT INFORMATION
  Report Type: Spontaneous
  Country: US (occurrence: US)
  Receive Date: 20241110
  Receipt Date: 20250326
  Transmission Date: 20250409
  Serious: No
  Sender: SANOFI AVENTIS
  Company Number: US-SA-2024SA311008

PATIENT
  Age: 55 Year
  Sex: Male

DRUGS (29)
  1. DUPIXENT [Suspect]
     Active Substance: DUPILUMAB
     Indication: Nasal polyps
     Dosage: 300 MG, QOW
     Route: 058
     Dates: start: 202308
  2. ZOFRAN [Concomitant]
     Active Substance: ONDANSETRON HYDROCHLORIDE
     Dosage: 2.000DF Q6H
     Route: 048
     Dates: start: 20140214
  3. MONTELUKAST [Concomitant]
     Active Substance: MONTELUKAST
     Dates: start: 20240619
  4. MUPIROCIN [Concomitant]
     Active Substance: MUPIROCIN
     Dosage: UNK UNK, BID
     Dates: start: 20221115
  5. DOXYCYCLINE HYCLATE [Concomitant]
     Active Substance: DOXYCYCLINE HYCLATE
     Dosage: 1 DF, BID
     Route: 048
     Dates: start: 20221115
  6. CEPHALEXIN [Concomitant]
     Active Substance: CEPHALEXIN
     Dates: start: 20240201
  7. CYCLOBENZAPRINE HYDROCHLORIDE [Concomitant]
     Active Substance: CYCLOBENZAPRINE HYDROCHLORIDE
     Dates: start: 20240625
  8. PREDNISONE [Concomitant]
     Active Substance: PREDNISONE
     Dosage: 1 DF, QD
     Route: 048
  9. PREDNISONE [Concomitant]
     Active Substance: PREDNISONE
     Dosage: TAKE 3 TABLETS BY MOUTH EVERY DAY FOR 5 DAYS THEN TAKE 2 TABLETS EVERY DAY FOR 5 DAYS THEN TAKE 1 TA
     Route: 048
     Dates: start: 20231010
  10. PREDNISONE [Concomitant]
     Active Substance: PREDNISONE
     Dosage: TAKE 3 TABLETS BY MOUTH EVERY DAY FOR 5 DAYS THEN TAKE 2 TABLETS EVERY DAY FOR 5 DAYS THEN TAKE 1 TA
     Route: 048
  11. TRAMADOL [Concomitant]
     Active Substance: TRAMADOL
     Dates: start: 20240813
  12. MELOXICAM [Concomitant]
     Active Substance: MELOXICAM
     Dates: start: 20240813
  13. PROPRANOLOL [Concomitant]
     Active Substance: PROPRANOLOL HYDROCHLORIDE
     Dates: start: 20230822
  14. AMPICILLIN TRIHYDRATE\CLAVULANATE POTASSIUM [Concomitant]
     Active Substance: AMPICILLIN TRIHYDRATE\CLAVULANATE POTASSIUM
     Dosage: 1 DF, BID
     Route: 048
     Dates: start: 20220228
  15. PREDNISONE [Concomitant]
     Active Substance: PREDNISONE
     Dosage: 2 DF, QD
     Route: 048
  16. PREDNISONE [Concomitant]
     Active Substance: PREDNISONE
     Dosage: TAKE 3 TABLETS BY MOUTH DAILY FOR 1 DAY AND 2 TABLETS DAILY FOR 3 DAYS AND 1 TABLET DAILY FOR 2 DAYS
     Route: 048
  17. PREDNISONE [Concomitant]
     Active Substance: PREDNISONE
     Dosage: TAKE 3 TABLETS BY MOUTH DAILY FOR 1 DAY AND 2 TABLETS DAILY FOR 3 DAYS AND 1 TABLET DAILY FOR 2 DAYS
     Route: 048
     Dates: start: 20230417
  18. SOLIFENACIN [SOLIFENACIN SUCCINATE] [Concomitant]
     Dosage: 1 DF, QD
     Route: 048
     Dates: start: 20221219
  19. BUDESONIDE [Concomitant]
     Active Substance: BUDESONIDE
     Dosage: UNK UNK, BID
     Dates: start: 20240617
  20. SOLIFENACIN [SOLIFENACIN SUCCINATE] [Concomitant]
     Dosage: 1 DF, QD
     Route: 048
     Dates: start: 20240617
  21. FLONASE [Concomitant]
     Active Substance: FLUTICASONE PROPIONATE
     Indication: Rhinitis allergic
     Dosage: 2 DF, QD
     Route: 045
     Dates: start: 20140130
  22. TAMSULOSIN [Concomitant]
     Active Substance: TAMSULOSIN
     Dosage: 2 DF, QD
     Route: 048
     Dates: start: 20240617
  23. TYLENOL EXTRA STRENGTH [Concomitant]
     Active Substance: ACETAMINOPHEN
     Dosage: 2 DF, Q6H
     Route: 048
     Dates: start: 20221115
  24. SULFAMETHOXAZOLE AND TRIMETHOPRIM [Concomitant]
     Active Substance: SULFAMETHOXAZOLE\TRIMETHOPRIM
     Dosage: 1 DF, BID
     Dates: start: 20220126
  25. PERCOCET [Concomitant]
     Active Substance: ACETAMINOPHEN\OXYCODONE HYDROCHLORIDE
     Route: 048
     Dates: start: 20140115
  26. ALBUTEROL SULFATE [Concomitant]
     Active Substance: ALBUTEROL SULFATE
     Dates: start: 20230417
  27. TRELEGY ELLIPTA [Concomitant]
     Active Substance: FLUTICASONE FUROATE\UMECLIDINIUM BROMIDE\VILANTEROL TRIFENATATE
     Dosage: 1 DF, QD
     Route: 048
     Dates: start: 20240617
  28. AZITHROMYCIN [Concomitant]
     Active Substance: AZITHROMYCIN
     Dosage: 1 DF, QD
     Route: 048
  29. AZITHROMYCIN [Concomitant]
     Active Substance: AZITHROMYCIN
     Dosage: TAKE 2 TABLETS (500 MG) BY ORAL ROUTE ONCE DAILY FOR 1 DAY THEN 1 TABLET (250 MG) BY ORAL ROUTE ONCE
     Route: 048
     Dates: start: 20231010

REACTIONS (3)
  - Paranasal sinus hypersecretion [Not Recovered/Not Resolved]
  - Rhinorrhoea [Not Recovered/Not Resolved]
  - Condition aggravated [Not Recovered/Not Resolved]

NARRATIVE: CASE EVENT DATE: 20240101
